FAERS Safety Report 9131698 (Version 1)
Quarter: 2013Q1

REPORT INFORMATION
  Report Type: Spontaneous
  Country: US (occurrence: US)
  Receive Date: 20130301
  Receipt Date: 20130301
  Transmission Date: 20140127
  Serious: No
  Sender: FDA-Public Use
  Company Number: US-009507513-1302USA013740

PATIENT
  Sex: Female

DRUGS (4)
  1. MIRTAZAPINE [Suspect]
     Indication: DEPRESSION
     Dosage: 15 MG, QD
     Route: 048
     Dates: start: 20121029, end: 20130203
  2. MIRTAZAPINE [Suspect]
     Dosage: 0.5 DF, QD
     Route: 048
     Dates: start: 20130204
  3. MIRTAZAPINE [Suspect]
     Dosage: 0.5 DF, QOD
     Route: 048
     Dates: end: 20130220
  4. VALIUM [Concomitant]
     Dosage: UNK

REACTIONS (3)
  - Salivary hypersecretion [Not Recovered/Not Resolved]
  - Salivary gland enlargement [Not Recovered/Not Resolved]
  - Drug ineffective [Unknown]
